FAERS Safety Report 8501015-4 (Version None)
Quarter: 2012Q3

REPORT INFORMATION
  Report Type: 
  Country: None (occurrence: None)
  Receive Date: 20120710
  Receipt Date: 20120627
  Transmission Date: 20120928
  Serious: No
  Sender: FDA-Public Use
  Company Number: US-ASTRAZENECA-2011SE35342

PATIENT
  Age: 71 Year
  Sex: Female

DRUGS (6)
  1. HALDOL [Suspect]
     Route: 065
  2. SEROQUEL XR [Suspect]
     Indication: BIPOLAR DISORDER
     Route: 048
     Dates: start: 20100101
  3. SEROQUEL XR [Suspect]
     Route: 048
  4. CELEXA [Concomitant]
     Indication: AFFECTIVE DISORDER
     Route: 048
     Dates: start: 20091215
  5. KLONOPIN [Concomitant]
     Indication: ANXIETY
     Route: 048
     Dates: start: 20080909
  6. WELLBUTRIN [Concomitant]
     Indication: AFFECTIVE DISORDER
     Route: 048
     Dates: start: 20080507

REACTIONS (4)
  - TARDIVE DYSKINESIA [None]
  - DRUG DOSE OMISSION [None]
  - ADVERSE EVENT [None]
  - ASOCIAL BEHAVIOUR [None]
